FAERS Safety Report 14255431 (Version 1)
Quarter: 2017Q4

REPORT INFORMATION
  Report Type: Spontaneous
  Country: US (occurrence: US)
  Receive Date: 20171206
  Receipt Date: 20171206
  Transmission Date: 20180321
  Serious: Yes (Hospitalization)
  Sender: FDA-Public Use
  Company Number: US-009507513-1712USA001951

PATIENT
  Age: 67 Year
  Sex: Female

DRUGS (4)
  1. CUBICIN [Suspect]
     Active Substance: DAPTOMYCIN
     Indication: SOFT TISSUE INFECTION
     Dosage: 6 MG/KG, QD
     Route: 042
     Dates: start: 20160511, end: 20160622
  2. DOXYCYCLINE. [Suspect]
     Active Substance: DOXYCYCLINE
     Indication: DEVICE RELATED INFECTION
  3. CUBICIN [Suspect]
     Active Substance: DAPTOMYCIN
     Indication: DEVICE RELATED INFECTION
  4. DOXYCYCLINE. [Suspect]
     Active Substance: DOXYCYCLINE
     Indication: SOFT TISSUE INFECTION
     Dosage: 100 MG, BID
     Route: 048
     Dates: start: 2016

REACTIONS (1)
  - Drug ineffective [Unknown]
